FAERS Safety Report 9551306 (Version 1)
Quarter: 2013Q2

REPORT INFORMATION
  Report Type: Spontaneous
  Country: US (occurrence: None)
  Receive Date: 20130627
  Receipt Date: 20130627
  Transmission Date: 20140414
  Serious: No
  Sender: FDA-Public Use
  Company Number: 1000045074

PATIENT
  Age: 79 Year
  Sex: Female

DRUGS (9)
  1. LINZESS (LINACLOTIDE) (290 MICROGRAM, CAPSULES) [Suspect]
     Indication: IRRITABLE BOWEL SYNDROME
     Route: 048
     Dates: start: 20130504
  2. LINZESS (LINACLOTIDE) (290 MICROGRAM, CAPSULES) [Suspect]
     Indication: CONSTIPATION
     Route: 048
     Dates: start: 20130504
  3. LISINOPRIL (LISINOPRIL) (LISINOPRIL) [Concomitant]
  4. CLONIDINE (CLONIDINE) (CLONIDINE) [Concomitant]
  5. PLAVIX(CLOPIDOGREL BISULFATE)(CLOPIDOGREL BISULFATE) [Concomitant]
  6. PEPCID(FAMOTIDINE)(FAMOTIDINE) [Concomitant]
  7. LORCET(HYDROCODONE, ACETAMINOPHEN)(HYDROCODONE, ACETAMINOPHEN) [Concomitant]
  8. ATENOLOL(ATENOLOL)(ATENOLOL) [Concomitant]
  9. CALCIUM(CALCIUM)(CALCIUM) [Concomitant]

REACTIONS (1)
  - Diarrhoea [None]
